FAERS Safety Report 23825136 (Version 1)
Quarter: 2024Q2

REPORT INFORMATION
  Report Type: Spontaneous
  Country: NL (occurrence: NL)
  Receive Date: 20240507
  Receipt Date: 20240507
  Transmission Date: 20240716
  Serious: Yes (Hospitalization, Other)
  Sender: FDA-Public Use
  Company Number: NL-MLMSERVICE-20180424-1158884-1

PATIENT
  Age: 54 Year
  Sex: Female

DRUGS (3)
  1. PREDNISOLONE [Suspect]
     Active Substance: PREDNISOLONE
     Indication: Antisynthetase syndrome
     Dosage: 40 MILLIGRAM, ONCE A DAY
     Route: 065
  2. PREDNISOLONE [Suspect]
     Active Substance: PREDNISOLONE
     Dosage: 12.5 MILLIGRAM, DAILY
     Route: 065
  3. RITUXIMAB [Concomitant]
     Active Substance: RITUXIMAB
     Indication: Antisynthetase syndrome
     Dosage: 500 MILLIGRAM (500 MG 6 PER MONTH)
     Route: 065

REACTIONS (4)
  - Scleroderma renal crisis [Recovering/Resolving]
  - Thrombotic microangiopathy [Recovering/Resolving]
  - Scleroderma-like reaction [Recovering/Resolving]
  - Hypertension [Recovering/Resolving]
